FAERS Safety Report 10498220 (Version 1)
Quarter: 2014Q4

REPORT INFORMATION
  Report Type: Spontaneous
  Country: US (occurrence: None)
  Receive Date: 20141003
  Receipt Date: 20141003
  Transmission Date: 20150528
  Serious: No
  Sender: FDA-Public Use
  Company Number: None

PATIENT

DRUGS (2)
  1. LUPRON DEPOT-PED [Suspect]
     Active Substance: LEUPROLIDE ACETATE
     Dosage: 11.25 MG Q 84 DAYS IM
     Route: 030
     Dates: start: 20140808, end: 20140909
  2. OMNITROPE [Concomitant]
     Active Substance: SOMATROPIN
     Dosage: 1.2 MG DAILY SQ
     Route: 058

REACTIONS (1)
  - Erythema multiforme [None]

NARRATIVE: CASE EVENT DATE: 20140621
